FAERS Safety Report 19527590 (Version 1)
Quarter: 2021Q3

REPORT INFORMATION
  Report Type: Spontaneous
  Country: US (occurrence: US)
  Receive Date: 20210713
  Receipt Date: 20210713
  Transmission Date: 20211014
  Serious: No
  Sender: FDA-Public Use
  Company Number: US-ELI_LILLY_AND_COMPANY-US202107001734

PATIENT
  Sex: Female

DRUGS (5)
  1. NOVOLOG [Concomitant]
     Active Substance: INSULIN ASPART
     Indication: TYPE 1 DIABETES MELLITUS
  2. BASAGLAR [Suspect]
     Active Substance: INSULIN GLARGINE
     Indication: TYPE 1 DIABETES MELLITUS
     Dosage: 2.25 U, DAILY
     Route: 058
     Dates: start: 202011
  3. BASAGLAR [Suspect]
     Active Substance: INSULIN GLARGINE
     Dosage: 2.25 U, DAILY
     Route: 058
     Dates: start: 202011
  4. BASAGLAR [Suspect]
     Active Substance: INSULIN GLARGINE
     Dosage: 2.25 U, DAILY
     Route: 058
     Dates: start: 202011
  5. BASAGLAR [Suspect]
     Active Substance: INSULIN GLARGINE
     Indication: TYPE 1 DIABETES MELLITUS
     Dosage: 2.25 U, DAILY
     Route: 058
     Dates: start: 202011

REACTIONS (2)
  - Wrong technique in product usage process [Unknown]
  - Blood glucose increased [Recovered/Resolved]
